FAERS Safety Report 11308702 (Version 2)
Quarter: 2015Q3

REPORT INFORMATION
  Report Type: Spontaneous
  Country: US (occurrence: US)
  Receive Date: 20150724
  Receipt Date: 20150910
  Transmission Date: 20151125
  Serious: No
  Sender: FDA-Public Use
  Company Number: US-PFIZER INC-2015242237

PATIENT
  Age: 73 Year
  Sex: Female

DRUGS (2)
  1. XALATAN [Suspect]
     Active Substance: LATANOPROST
     Indication: GLAUCOMA
     Dosage: UNK (ONCE A DAY (2) AT BED TIME)
  2. XALATAN [Suspect]
     Active Substance: LATANOPROST
     Dosage: UNK (ONCE A DAY (2) AT BED TIME)

REACTIONS (2)
  - Visual acuity reduced [Recovered/Resolved]
  - Memory impairment [Recovered/Resolved]
